FAERS Safety Report 19140149 (Version 2)
Quarter: 2021Q2

REPORT INFORMATION
  Report Type: Spontaneous
  Country: US (occurrence: US)
  Receive Date: 20210415
  Receipt Date: 20210604
  Transmission Date: 20210717
  Serious: No
  Sender: FDA-Public Use
  Company Number: US-GLAXOSMITHKLINE-US2021080794

PATIENT
  Sex: Female

DRUGS (2)
  1. SUMATRIPTAN SUCCINATE. [Suspect]
     Active Substance: SUMATRIPTAN SUCCINATE
  2. SUMATRIPTAN SUCCINATE. [Suspect]
     Active Substance: SUMATRIPTAN SUCCINATE
     Indication: MIGRAINE
     Dosage: UNK, (4 MG 2?UD)
     Route: 058

REACTIONS (6)
  - Product complaint [Unknown]
  - Nausea [Unknown]
  - Underdose [Unknown]
  - Drug ineffective [Unknown]
  - Head discomfort [Unknown]
  - Wrong technique in device usage process [Unknown]
